FAERS Safety Report 23318614 (Version 3)
Quarter: 2024Q1

REPORT INFORMATION
  Report Type: Spontaneous
  Country: JP (occurrence: JP)
  Receive Date: 20231220
  Receipt Date: 20240311
  Transmission Date: 20240409
  Serious: Yes (Death, Hospitalization, Other)
  Sender: FDA-Public Use
  Company Number: JP-SAKK-2023SA388066AA

PATIENT
  Age: 99 Year
  Sex: Female
  Weight: 35 kg

DRUGS (8)
  1. DUPIXENT [Suspect]
     Active Substance: DUPILUMAB
     Indication: Neurodermatitis
     Dosage: 600 MG, 1X
     Route: 058
     Dates: start: 20231205, end: 20231205
  2. DUPIXENT [Suspect]
     Active Substance: DUPILUMAB
     Indication: Dermatitis atopic
  3. BEPOTASTINE BESYLATE [Concomitant]
     Active Substance: BEPOTASTINE BESYLATE
     Indication: Pruritus
     Dosage: 1 DF, BID
     Route: 048
     Dates: start: 20231205, end: 20231207
  4. MYSER [DIFLUPREDNATE] [Concomitant]
     Indication: Rash
     Dosage: ADEQUATE DOSE, BID
     Route: 065
     Dates: start: 20231127, end: 20231207
  5. GLYCOSAMINOGLYCANS [Concomitant]
     Active Substance: GLYCOSAMINOGLYCANS
     Indication: Dry skin prophylaxis
     Dosage: ADEQUATE DOSE, BID
     Route: 065
     Dates: start: 20231127, end: 20231207
  6. CALONAL [Concomitant]
     Active Substance: ACETAMINOPHEN
     Indication: Headache
     Dosage: 2 DF, QID
     Route: 048
     Dates: start: 202309, end: 2023
  7. CELESTAMINE [Concomitant]
     Active Substance: BETAMETHASONE\DEXCHLORPHENIRAMINE MALEATE
     Indication: Pruritus
     Dosage: UNK
     Route: 048
     Dates: start: 2023, end: 2023
  8. NALFURAFINE HYDROCHLORIDE [Concomitant]
     Active Substance: NALFURAFINE HYDROCHLORIDE
     Indication: Pruritus
     Dosage: UNK
     Route: 048
     Dates: start: 2023, end: 2023

REACTIONS (5)
  - Upper gastrointestinal perforation [Fatal]
  - Abdominal pain [Fatal]
  - Vomiting [Fatal]
  - Hepatic cancer metastatic [Fatal]
  - Condition aggravated [Fatal]

NARRATIVE: CASE EVENT DATE: 20231207
